FAERS Safety Report 10434548 (Version 2)
Quarter: 2015Q1

REPORT INFORMATION
  Report Type: Spontaneous
  Country: FR (occurrence: FR)
  Receive Date: 20140905
  Receipt Date: 20150122
  Transmission Date: 20150720
  Serious: Yes (Hospitalization, Disabling)
  Sender: FDA-Public Use
  Company Number: FR-ASTRAZENECA-2014SE65049

PATIENT
  Age: 168 Month
  Sex: Female
  Weight: 52 kg

DRUGS (7)
  1. SPASFON [Concomitant]
     Active Substance: PHLOROGLUCINOL
  2. SYMBICORT [Suspect]
     Active Substance: BUDESONIDE\FORMOTEROL FUMARATE DIHYDRATE
     Indication: ASTHMA
     Dosage: 320/9UG PER DOSE, ONE INHALATION IN THE MORNING AND ONE INHALATION IN THE EVENING
     Route: 055
     Dates: start: 201109
  3. SYMBICORT [Suspect]
     Active Substance: BUDESONIDE\FORMOTEROL FUMARATE DIHYDRATE
     Indication: ASTHMA
     Dosage: 320/9 UG PER DOSE, ONE INHALATION IN THE MORNING AND ONE INHALATION IN THE EVENING
     Route: 055
  4. SOLUPRED [Concomitant]
     Active Substance: PREDNISOLONE
     Indication: ASTHMA
     Dosage: AS REQUIRED
  5. GARDASIL [Concomitant]
     Active Substance: HUMAN PAPILLOMAVIRUS QUADRIVALENT (TYPES 6, 11, 16, AND 18) VACCINE, RECOMBINANT
  6. MINIDRIL [Concomitant]
     Active Substance: ETHINYL ESTRADIOL\LEVONORGESTREL
  7. UTROGESTAN [Concomitant]
     Active Substance: PROGESTERONE

REACTIONS (2)
  - Metrorrhagia [Recovered/Resolved]
  - Asthma [Recovered/Resolved]

NARRATIVE: CASE EVENT DATE: 201301
